FAERS Safety Report 25285765 (Version 1)
Quarter: 2025Q2

REPORT INFORMATION
  Report Type: Spontaneous
  Country: DE (occurrence: DE)
  Receive Date: 20250509
  Receipt Date: 20250509
  Transmission Date: 20250717
  Serious: Yes (Life-Threatening, Hospitalization, Disabling, Other)
  Sender: BOEHRINGER INGELHEIM
  Company Number: None

PATIENT
  Sex: Male

DRUGS (7)
  1. JARDIANCE [Suspect]
     Active Substance: EMPAGLIFLOZIN
     Indication: Type 2 diabetes mellitus
     Dates: end: 20241107
  2. ASS 100 mg HEXAL [Concomitant]
     Indication: Product used for unknown indication
  3. Atorvastatin Zentiva 20 mg [Concomitant]
     Indication: Product used for unknown indication
  4. Biso Lich 5 mg [Concomitant]
     Indication: Product used for unknown indication
  5. Metformin Lich 1000mg [Concomitant]
     Indication: Product used for unknown indication
  6. Pantoprazol Aristo 20 mg magensaftresistente Tabletten [Concomitant]
     Indication: Product used for unknown indication
  7. Sitagliptin PUREN 50 mg Filmtabletten [Concomitant]
     Indication: Product used for unknown indication

REACTIONS (4)
  - Fournier^s gangrene [Unknown]
  - Dysuria [Unknown]
  - Pollakiuria [Unknown]
  - Scrotal pain [Unknown]

NARRATIVE: CASE EVENT DATE: 20240101
